FAERS Safety Report 9265788 (Version 1)
Quarter: 2013Q2

REPORT INFORMATION
  Report Type: Spontaneous
  Country: CA (occurrence: CA)
  Receive Date: 20130501
  Receipt Date: 20130501
  Transmission Date: 20140414
  Serious: Yes (Death)
  Sender: FDA-Public Use
  Company Number: CA-GLAXOSMITHKLINE-A1021515A

PATIENT
  Age: 53 Year
  Sex: Female

DRUGS (4)
  1. TYKERB [Suspect]
     Indication: BREAST CANCER METASTATIC
     Dosage: 1250MG PER DAY
     Route: 048
     Dates: start: 20130201
  2. HCTZ [Concomitant]
  3. REACTINE (CETIRIZINE HYDROCHLORIDE+PSEUDOEPHEDRINE HYDROCHLORIDE) [Concomitant]
  4. SINGULAIR [Concomitant]

REACTIONS (1)
  - Death [Fatal]
